FAERS Safety Report 11368344 (Version 1)
Quarter: 2015Q3

REPORT INFORMATION
  Report Type: Spontaneous
  Country: US (occurrence: US)
  Receive Date: 20150811
  Receipt Date: 20150811
  Transmission Date: 20151125
  Serious: No
  Sender: FDA-Public Use
  Company Number: US-ELI_LILLY_AND_COMPANY-US201405008005

PATIENT
  Age: 57 Year
  Sex: Male

DRUGS (2)
  1. AXIRON [Suspect]
     Active Substance: TESTOSTERONE
     Indication: BLOOD TESTOSTERONE DECREASED
     Dosage: 60 MG, QD
     Route: 062
     Dates: start: 201308, end: 201405
  2. AXIRON [Suspect]
     Active Substance: TESTOSTERONE
     Dosage: UNK, OTHER
     Route: 062
     Dates: start: 201405

REACTIONS (4)
  - Acne [Recovering/Resolving]
  - Mood altered [Recovered/Resolved]
  - Blood testosterone increased [Recovered/Resolved]
  - Aggression [Recovered/Resolved]

NARRATIVE: CASE EVENT DATE: 201405
